FAERS Safety Report 4919023-9 (Version None)
Quarter: 2006Q1

REPORT INFORMATION
  Report Type: 
  Country: None (occurrence: None)
  Receive Date: 20060216
  Receipt Date: 20060131
  Transmission Date: 20060701
  Serious: Yes (Hospitalization, Other)
  Sender: FDA-Public Use
  Company Number: US200602000195

PATIENT
  Age: 12 Year
  Sex: Male

DRUGS (1)
  1. HUMATROPE [Suspect]

REACTIONS (3)
  - HAEMATOCRIT DECREASED [None]
  - HAEMOGLOBIN DECREASED [None]
  - INTESTINAL HAEMORRHAGE [None]
